FAERS Safety Report 21044335 (Version 3)
Quarter: 2022Q3

REPORT INFORMATION
  Report Type: Report from Study
  Country: BR (occurrence: None)
  Receive Date: 20220705
  Receipt Date: 20220907
  Transmission Date: 20221027
  Serious: Yes (Other)
  Sender: FDA-Public Use
  Company Number: BR-Merck Healthcare KGaA-9333453

PATIENT
  Age: 37 Year
  Sex: Female

DRUGS (2)
  1. MAVENCLAD [Suspect]
     Active Substance: CLADRIBINE
     Indication: Multiple sclerosis
     Dosage: YEAR ONE MONTH ONE THERAPY TWO TABLETS ON DAYS 1 TO 4, AND ONE TABLET ON DAY 5.
     Route: 048
     Dates: start: 20220527, end: 20220531
  2. MAVENCLAD [Suspect]
     Active Substance: CLADRIBINE
     Dosage: YEAR ONE MONTH TWO THERAPY TWO TABLETS ON DAYS 1 TO 3, AND ONE TABLET ON DAY 4 TO 5.
     Route: 048
     Dates: start: 20220704, end: 20220708

REACTIONS (12)
  - Influenza [Not Recovered/Not Resolved]
  - Pneumonia [Not Recovered/Not Resolved]
  - Angioedema [Not Recovered/Not Resolved]
  - Decreased immune responsiveness [Not Recovered/Not Resolved]
  - Dysphonia [Recovering/Resolving]
  - Dysphemia [Not Recovered/Not Resolved]
  - Renal pain [Not Recovered/Not Resolved]
  - Skin discolouration [Not Recovered/Not Resolved]
  - Decreased appetite [Not Recovered/Not Resolved]
  - Pruritus [Not Recovered/Not Resolved]
  - Back pain [Not Recovered/Not Resolved]
  - Musculoskeletal chest pain [Not Recovered/Not Resolved]

NARRATIVE: CASE EVENT DATE: 20220704
